FAERS Safety Report 5725033-4 (Version None)
Quarter: 2008Q2

REPORT INFORMATION
  Report Type: 
  Country: None (occurrence: None)
  Receive Date: 20080429
  Receipt Date: 20080414
  Transmission Date: 20081010
  Serious: Yes (Death)
  Sender: FDA-Public Use
  Company Number: 2008S1006336

PATIENT
  Age: 42 Year
  Sex: Male

DRUGS (1)
  1. CITALOPRAM HYDROBROMIDE [Suspect]
     Indication: DEPRESSION
     Dosage: 20 MG; ; ORAL
     Route: 048
     Dates: start: 20070919, end: 20070921

REACTIONS (1)
  - COMPLETED SUICIDE [None]
